FAERS Safety Report 16178086 (Version 2)
Quarter: 2019Q2

REPORT INFORMATION
  Report Type: Spontaneous
  Country: JP (occurrence: JP)
  Receive Date: 20190410
  Receipt Date: 20190425
  Transmission Date: 20190711
  Serious: No
  Sender: FDA-Public Use
  Company Number: JP-ABBVIE-19P-087-2738351-00

PATIENT
  Age: 79 Year
  Sex: Male
  Weight: 65 kg

DRUGS (5)
  1. LEUPLIN [Suspect]
     Active Substance: LEUPROLIDE ACETATE
     Indication: PROSTATE CANCER
     Dosage: 3.75 MILLIGRAM, MONTHLY
     Route: 058
     Dates: start: 20130418
  2. ODYNE [Concomitant]
     Active Substance: FLUTAMIDE
     Indication: PROSTATE CANCER
     Dosage: 125 MILLIGRAM, TID
     Route: 048
     Dates: start: 20160222
  3. LEUPLIN [Suspect]
     Active Substance: LEUPROLIDE ACETATE
     Indication: METASTASES TO BONE
  4. URITOS [Concomitant]
     Active Substance: IMIDAFENACIN
     Indication: HYPERTONIC BLADDER
     Dosage: 0.1 MILLIGRAM, QD
     Route: 048
     Dates: start: 20180124
  5. BILASTINE [Suspect]
     Active Substance: BILASTINE
     Indication: SEASONAL ALLERGY
     Dosage: 20 MILLIGRAM, QD
     Route: 048
     Dates: start: 20190306, end: 20190403

REACTIONS (3)
  - Seasonal allergy [Unknown]
  - Tinnitus [Unknown]
  - Deafness [Unknown]

NARRATIVE: CASE EVENT DATE: 201903
